FAERS Safety Report 5924676-2 (Version None)
Quarter: 2008Q4

REPORT INFORMATION
  Report Type: 
  Country: None (occurrence: None)
  Receive Date: 20081020
  Receipt Date: 20081010
  Transmission Date: 20090506
  Serious: Yes (Death)
  Sender: FDA-Public Use
  Company Number: IT-MERCK-0810ITA00019

PATIENT
  Age: 21 Year
  Sex: Male

DRUGS (6)
  1. CANCIDAS [Suspect]
     Indication: ASPERGILLOSIS
     Route: 051
  2. CANCIDAS [Suspect]
     Route: 051
  3. AMPHOTERICIN B AND CHOLESTEROL AND DISTEAROYLPHOSPHATIDYLGLYCEROL AND [Concomitant]
     Indication: ASPERGILLOSIS
     Route: 065
  4. VORICONAZOLE [Concomitant]
     Route: 051
  5. VORICONAZOLE [Concomitant]
     Route: 051
  6. VORICONAZOLE [Concomitant]
     Route: 051

REACTIONS (6)
  - ACUTE RESPIRATORY FAILURE [None]
  - ASPERGILLOSIS [None]
  - DRUG INEFFECTIVE [None]
  - HYPOKALAEMIA [None]
  - PARAPLEGIA [None]
  - PROTEINURIA [None]
